FAERS Safety Report 5097862-4 (Version None)
Quarter: 2006Q3

REPORT INFORMATION
  Report Type: 
  Country: None (occurrence: None)
  Receive Date: 20060905
  Receipt Date: 20060816
  Transmission Date: 20061208
  Serious: Yes (Hospitalization)
  Sender: FDA-Public Use
  Company Number: ENTC2006-0208

PATIENT
  Age: 70 Year
  Sex: Male

DRUGS (2)
  1. STALEVO 100 [Suspect]
     Indication: PARKINSON'S DISEASE
     Dosage: 300 MG (100 MG, 3 IN 1 D) ORAL  1 YEAR AGO
     Route: 048
  2. CABASER [Suspect]
     Indication: PARKINSON'S DISEASE
     Dosage: 8 MG ORAL

REACTIONS (6)
  - AGITATION [None]
  - BRADYCARDIA [None]
  - CHEYNE-STOKES RESPIRATION [None]
  - COMA [None]
  - INTENTIONAL OVERDOSE [None]
  - SUICIDE ATTEMPT [None]
